FAERS Safety Report 4919787-4 (Version None)
Quarter: 2006Q1

REPORT INFORMATION
  Report Type: 
  Country: None (occurrence: None)
  Receive Date: 20060216
  Receipt Date: 20060127
  Transmission Date: 20060701
  Serious: Yes (Death)
  Sender: FDA-Public Use
  Company Number: GB200601004712

PATIENT
  Age: 58 Year
  Sex: Female
  Weight: 50 kg

DRUGS (16)
  1. XIGRIS [Suspect]
     Indication: ABDOMINAL SEPSIS
     Dosage: 24 ?G/KG/HR, INTRAVENOUS
     Route: 042
     Dates: start: 20051228, end: 20051228
  2. EPINEPHRINE [Concomitant]
  3. ATRACURIUM BESYLATE [Concomitant]
  4. INSULIN [Concomitant]
  5. DOBUTAMINE (DOBUTAMINE) [Concomitant]
  6. DOPEXAMINE (DOPEXAMINE) [Concomitant]
  7. FENTANYL [Concomitant]
  8. HYDROCORTISONE [Concomitant]
  9. NORADRENALINE (NOREPINEPHRINE) [Concomitant]
  10. PROPOFOL [Concomitant]
  11. VANCOMYCIN [Concomitant]
  12. CALCIUM CHLORIDE DIHYDRATE (CALCIUM CHLORIDE DIHYDRATE) [Concomitant]
  13. GENTAMICIN [Concomitant]
  14. PANTOPRAZOLE SODIUM [Concomitant]
  15. MAGNESIUM (MAGNESIUM) [Concomitant]
  16. ATROPINE [Concomitant]

REACTIONS (1)
  - PULMONARY HAEMORRHAGE [None]
